FAERS Safety Report 20338095 (Version 2)
Quarter: 2022Q2

REPORT INFORMATION
  Report Type: Spontaneous
  Country: CA (occurrence: CA)
  Receive Date: 20220115
  Receipt Date: 20220616
  Transmission Date: 20220721
  Serious: Yes (Death)
  Sender: FDA-Public Use
  Company Number: CA-drreddys-SPO/CAN/22/0145851

PATIENT
  Age: 66 Year

DRUGS (2)
  1. AZACITIDINE [Suspect]
     Active Substance: AZACITIDINE
     Indication: Myeloid leukaemia
     Dosage: 75 MG/M2 FOR 6 DAYS EVERY 28 DAYS
     Route: 065
     Dates: start: 20211115
  2. AZACITIDINE [Suspect]
     Active Substance: AZACITIDINE
     Dosage: 75 MG/M2 FOR 6 DAYS EVERY 28 DAYS
     Route: 065

REACTIONS (1)
  - Death [Fatal]
